FAERS Safety Report 5736469-X (Version None)
Quarter: 2008Q2

REPORT INFORMATION
  Report Type: 
  Country: None (occurrence: None)
  Receive Date: 20080508
  Receipt Date: 20080428
  Transmission Date: 20081010
  Serious: Yes (Life-Threatening, Hospitalization)
  Sender: FDA-Public Use
  Company Number: FR-1165976

PATIENT
  Age: 83 Year
  Sex: Male

DRUGS (7)
  1. BETOPTIC [Suspect]
     Dosage: OPHTHALMIC
     Route: 047
  2. CORDARONE [Concomitant]
  3. COZAAR [Concomitant]
  4. SINTROM [Concomitant]
  5. BEFIZAL (BEZAFIBRATE) [Concomitant]
  6. TAMSULOSIN HCL [Concomitant]
  7. AVODART [Concomitant]

REACTIONS (6)
  - ASTHENIA [None]
  - ATRIOVENTRICULAR BLOCK [None]
  - BLOOD PRESSURE SYSTOLIC INCREASED [None]
  - CARDIAC FAILURE [None]
  - DYSPNOEA [None]
  - OEDEMA PERIPHERAL [None]
